FAERS Safety Report 23936689 (Version 1)
Quarter: 2024Q2

REPORT INFORMATION
  Report Type: Report from Study
  Country: CR (occurrence: CR)
  Receive Date: 20240604
  Receipt Date: 20240604
  Transmission Date: 20240715
  Serious: Yes (Life-Threatening, Other)
  Sender: FDA-Public Use
  Company Number: CR-002147023-NVSC2024CR115566

PATIENT
  Age: 81 Year
  Sex: Female

DRUGS (2)
  1. EXFORGE [Suspect]
     Active Substance: AMLODIPINE BESYLATE\VALSARTAN
     Indication: Hypertension
     Dosage: 160/5MG, QD (7 DAYS OR SOMETHING)
     Route: 048
     Dates: start: 202404, end: 202404
  2. EXFORGE [Suspect]
     Active Substance: AMLODIPINE BESYLATE\VALSARTAN
     Dosage: 80/5MG, QD
     Route: 048
     Dates: start: 202404

REACTIONS (8)
  - Vertigo [Recovering/Resolving]
  - Product dispensing error [Recovered/Resolved]
  - Nervous system disorder [Unknown]
  - Headache [Recovering/Resolving]
  - Disorientation [Unknown]
  - Dizziness [Unknown]
  - Condition aggravated [Recovering/Resolving]
  - Incorrect dose administered [Unknown]

NARRATIVE: CASE EVENT DATE: 20240401
